FAERS Safety Report 7960975-0 (Version None)
Quarter: 2011Q4

REPORT INFORMATION
  Report Type: 
  Country: None (occurrence: None)
  Receive Date: 20111201
  Receipt Date: 20111201
  Transmission Date: 20120403
  Serious: Yes (Other)
  Sender: FDA-Public Use
  Company Number: None

PATIENT
  Sex: Male

DRUGS (1)
  1. DRONABINOL [Suspect]

REACTIONS (3)
  - VOMITING [None]
  - PRODUCT SUBSTITUTION ISSUE [None]
  - NAUSEA [None]
